FAERS Safety Report 20949646 (Version 1)
Quarter: 2022Q2

REPORT INFORMATION
  Report Type: Spontaneous
  Country: US (occurrence: US)
  Receive Date: 20220613
  Receipt Date: 20220613
  Transmission Date: 20220721
  Serious: Yes (Hospitalization, Other)
  Sender: FDA-Public Use
  Company Number: US-PROCTER+GAMBLE-PH22005762

PATIENT
  Age: 68 Year
  Sex: Female

DRUGS (7)
  1. DEXTROMETHORPHAN\GUAIFENESIN [Suspect]
     Active Substance: DEXTROMETHORPHAN\GUAIFENESIN
     Indication: Upper respiratory tract infection
     Dosage: UNK
  2. DULOXETINE [Suspect]
     Active Substance: DULOXETINE
     Dosage: 60 MILLIGRAM, 2 /DAY
     Route: 048
  3. MIRTAZAPINE [Suspect]
     Active Substance: MIRTAZAPINE
     Dosage: 45 MILLIGRAM, BEDTIME
     Route: 048
  4. TRAZODONE [Suspect]
     Active Substance: TRAZODONE HYDROCHLORIDE
     Dosage: 350 MILLIGRAM, BEDTIME
     Route: 048
  5. LAMOTRIGINE [Suspect]
     Active Substance: LAMOTRIGINE
     Dosage: 200 MILLIGRAM, DAILY
     Route: 048
  6. GABAPENTIN [Suspect]
     Active Substance: GABAPENTIN
     Dosage: 1200 MILLIGRAM, 3 /DAY
     Route: 048
  7. TRAMADOL [Suspect]
     Active Substance: TRAMADOL
     Dosage: 50 MILLIGRAM, 2 /DAY

REACTIONS (18)
  - Serotonin syndrome [Recovering/Resolving]
  - Tremor [Recovering/Resolving]
  - Musculoskeletal stiffness [Recovering/Resolving]
  - Clonus [Recovering/Resolving]
  - Hypertonia [Recovering/Resolving]
  - Hyperreflexia [Recovered/Resolved]
  - Asthenia [Recovered/Resolved]
  - Gait disturbance [Recovering/Resolving]
  - Nausea [Recovering/Resolving]
  - Vomiting [Recovering/Resolving]
  - Diarrhoea [Recovering/Resolving]
  - Tachycardia [Recovering/Resolving]
  - Hyperhidrosis [Recovering/Resolving]
  - Mucosal disorder [Recovering/Resolving]
  - Abdominal tenderness [Recovering/Resolving]
  - White blood cell count increased [Recovering/Resolving]
  - Metabolic acidosis [Recovering/Resolving]
  - Blood glucose increased [Recovering/Resolving]
